FAERS Safety Report 4679200-1 (Version None)
Quarter: 2005Q2

REPORT INFORMATION
  Report Type: 
  Country: None (occurrence: None)
  Receive Date: 20050119
  Receipt Date: 20050119
  Transmission Date: 20051028
  Serious: Yes (Other)
  Sender: FDA-Public Use
  Company Number: None

PATIENT
  Sex: Female
  Weight: 89.8122 kg

DRUGS (7)
  1. WARFARIN SODIUM [Suspect]
     Indication: PULMONARY EMBOLISM
     Dosage: PO  UAD
     Route: 048
     Dates: start: 20031201, end: 20040127
  2. WARFARIN SODIUM [Suspect]
     Indication: PULMONARY EMBOLISM
     Dosage: PO UADS
     Route: 048
     Dates: start: 20031203, end: 20040127
  3. ADVAIR DISKUS 100/50 [Concomitant]
  4. DUONEB [Concomitant]
  5. LORAZEPAM [Concomitant]
  6. NEURONTIN [Concomitant]
  7. MIRTAZAPINE [Concomitant]

REACTIONS (3)
  - PRURITUS [None]
  - THERAPEUTIC RESPONSE UNEXPECTED WITH DRUG SUBSTITUTION [None]
  - URTICARIA [None]
